FAERS Safety Report 4656086-2 (Version None)
Quarter: 2005Q2

REPORT INFORMATION
  Report Type: 
  Country: None (occurrence: None)
  Receive Date: 20050505
  Receipt Date: 20050104
  Transmission Date: 20051028
  Serious: Yes (Hospitalization)
  Sender: FDA-Public Use
  Company Number: 430001M05JPN

PATIENT
  Age: 62 Year
  Sex: Male

DRUGS (7)
  1. MITOXANTRONE [Suspect]
     Indication: NODAL MARGINAL ZONE B-CELL LYMPHOMA
     Dosage: 15 MG, 1 IN 1 DAYS
     Dates: start: 20031029, end: 20031029
  2. CLADRIBINE [Suspect]
     Indication: NODAL MARGINAL ZONE B-CELL LYMPHOMA
     Dosage: 5.5 MG, 1 IN 1 DAYS, INTRAVENOUS
     Route: 042
     Dates: start: 20031029, end: 20031104
  3. RITUXIMAB [Suspect]
     Indication: NODAL MARGINAL ZONE B-CELL LYMPHOMA
     Dosage: 500 MG, 1 IN 1 DAYS
     Dates: start: 20031029, end: 20031029
  4. DEXAMETHASONE SODIUM PHOSPHATE [Concomitant]
  5. ZOPICLONE [Concomitant]
  6. ROXATIDINE ACETATE HCL [Concomitant]
  7. ALLOPURINOL [Concomitant]

REACTIONS (2)
  - HEPATIC FUNCTION ABNORMAL [None]
  - PANCYTOPENIA [None]
